FAERS Safety Report 21899520 (Version 1)
Quarter: 2023Q1

REPORT INFORMATION
  Report Type: Spontaneous
  Country: CA (occurrence: CA)
  Receive Date: 20230123
  Receipt Date: 20230123
  Transmission Date: 20230417
  Serious: Yes (Other)
  Sender: FDA-Public Use
  Company Number: CA-TEVA-2023-CA-2847490

PATIENT
  Sex: Female

DRUGS (1)
  1. PREDNISONE [Suspect]
     Active Substance: PREDNISONE
     Indication: Product used for unknown indication
     Route: 065
     Dates: start: 2020

REACTIONS (5)
  - Musculoskeletal stiffness [Unknown]
  - Systemic lupus erythematosus [Unknown]
  - Diarrhoea [Unknown]
  - Vomiting [Unknown]
  - Fatigue [Unknown]

NARRATIVE: CASE EVENT DATE: 20230102
